FAERS Safety Report 15898431 (Version 2)
Quarter: 2019Q1

REPORT INFORMATION
  Report Type: Spontaneous
  Country: US (occurrence: US)
  Receive Date: 20190201
  Receipt Date: 20190212
  Transmission Date: 20190417
  Serious: No
  Sender: FDA-Public Use
  Company Number: US-HORIZON-KRY-0046-2019

PATIENT
  Age: 65 Year
  Sex: Male

DRUGS (1)
  1. KRYSTEXXA [Suspect]
     Active Substance: PEGLOTICASE
     Indication: GOUT
     Dosage: 8 MG Q 2 WEEKS
     Dates: start: 20181213, end: 20190109

REACTIONS (5)
  - Muscle strain [Unknown]
  - Back pain [Unknown]
  - Blood uric acid increased [Unknown]
  - Gout [Unknown]
  - Infusion related reaction [Recovered/Resolved]

NARRATIVE: CASE EVENT DATE: 20181213
